FAERS Safety Report 6892016-0 (Version None)
Quarter: 2010Q3

REPORT INFORMATION
  Report Type: 
  Country: None (occurrence: None)
  Receive Date: 20100731
  Receipt Date: 20071219
  Transmission Date: 20110219
  Serious: No
  Sender: FDA-Public Use
  Company Number: US-PFIZER INC-2007107489

PATIENT
  Sex: Male
  Weight: 97.7 kg

DRUGS (4)
  1. NEURONTIN [Suspect]
     Indication: NEURALGIA
     Route: 048
     Dates: start: 20071201
  2. NEXIUM [Concomitant]
  3. ACETYLSALICYLIC ACID SRT [Concomitant]
  4. TOPROL-XL [Concomitant]

REACTIONS (1)
  - DRUG EFFECT DECREASED [None]
